FAERS Safety Report 12594014 (Version 2)
Quarter: 2016Q3

REPORT INFORMATION
  Report Type: Spontaneous
  Country: JP (occurrence: JP)
  Receive Date: 20160726
  Receipt Date: 20160822
  Transmission Date: 20161109
  Serious: Yes (Death)
  Sender: FDA-Public Use
  Company Number: JP-SA-2016SA133316

PATIENT
  Age: 74 Year
  Sex: Male
  Weight: 53.9 kg

DRUGS (2)
  1. TAXOTERE [Suspect]
     Active Substance: DOCETAXEL
     Indication: LUNG NEOPLASM MALIGNANT
     Dosage: ONCE IN EVERY TWO WEEKS
     Route: 042
     Dates: start: 20120913, end: 20120913
  2. TAXOTERE [Suspect]
     Active Substance: DOCETAXEL
     Indication: LUNG NEOPLASM MALIGNANT
     Dosage: ONCE IN EVERY TWO WEEKS
     Route: 042
     Dates: start: 20120927, end: 20120927

REACTIONS (7)
  - Dyspnoea [Fatal]
  - Condition aggravated [Fatal]
  - Pleural effusion [Fatal]
  - Pyrexia [Fatal]
  - Drug ineffective [Unknown]
  - Lymphadenopathy mediastinal [Fatal]
  - Pulmonary toxicity [Fatal]

NARRATIVE: CASE EVENT DATE: 20121011
